FAERS Safety Report 21991265 (Version 4)
Quarter: 2024Q1

REPORT INFORMATION
  Report Type: Spontaneous
  Country: JP (occurrence: JP)
  Receive Date: 20230214
  Receipt Date: 20240319
  Transmission Date: 20240410
  Serious: Yes (Death, Other)
  Sender: FDA-Public Use
  Company Number: JP-JAZZ-2023-JP-003384

PATIENT
  Age: 61 Year
  Sex: Female
  Weight: 54 kg

DRUGS (4)
  1. DEFITELIO [Suspect]
     Active Substance: DEFIBROTIDE SODIUM
     Indication: Venoocclusive liver disease
     Dosage: 6.25 MILLIGRAM/KILOGRAM, QD
     Route: 042
     Dates: start: 20230111, end: 20240111
  2. DEFITELIO [Suspect]
     Active Substance: DEFIBROTIDE SODIUM
     Dosage: 25 MILLIGRAM/KILOGRAM, QD
     Route: 042
     Dates: start: 20230112, end: 20230130
  3. NOREPINEPHRINE [Concomitant]
     Active Substance: NOREPINEPHRINE\NOREPINEPHRINE BITARTRATE
     Indication: Vasopressive therapy
  4. ACOALAN [Concomitant]
     Indication: Product used for unknown indication
     Dosage: UNK
     Dates: start: 20230117, end: 20230129

REACTIONS (2)
  - Venoocclusive liver disease [Fatal]
  - Septic shock [Fatal]

NARRATIVE: CASE EVENT DATE: 20230111
